FAERS Safety Report 10223042 (Version 3)
Quarter: 2014Q2

REPORT INFORMATION
  Report Type: Spontaneous
  Country: US (occurrence: None)
  Receive Date: 20140605
  Receipt Date: 20140619
  Transmission Date: 20141212
  Serious: Yes (Hospitalization)
  Sender: FDA-Public Use
  Company Number: UNT-2014-001169

PATIENT
  Age: 75 Year
  Sex: Female
  Weight: 67.1 kg

DRUGS (2)
  1. REMODULIN [Suspect]
     Indication: PULMONARY ARTERIAL HYPERTENSION
     Dosage: 0.02 UG/KG/MIN, CONTINUING, SUBCUTANEOUS
     Route: 058
     Dates: start: 20140514
  2. TYVASO [Suspect]
     Indication: PRODUCT USED FOR UNKNOWN INDICATION
     Route: 055

REACTIONS (11)
  - Muscle twitching [None]
  - Pain [None]
  - Fall [None]
  - Dysstasia [None]
  - Muscle twitching [None]
  - Balance disorder [None]
  - Dehydration [None]
  - Abdominal discomfort [None]
  - Back pain [None]
  - Bone pain [None]
  - Food aversion [None]
